FAERS Safety Report 17750588 (Version 1)
Quarter: 2020Q2

REPORT INFORMATION
  Report Type: Spontaneous
  Country: CH (occurrence: CH)
  Receive Date: 20200506
  Receipt Date: 20200506
  Transmission Date: 20200714
  Serious: Yes (Other)
  Sender: FDA-Public Use
  Company Number: CH-009507513-2005CHE000853

PATIENT
  Age: 72 Year
  Sex: Female

DRUGS (10)
  1. KEYTRUDA [Suspect]
     Active Substance: PEMBROLIZUMAB
     Dosage: 200 MILLIGRAM, Q3W
     Route: 042
     Dates: start: 20200225, end: 20200317
  2. EUTHYROX [Concomitant]
     Active Substance: LEVOTHYROXINE SODIUM
     Dosage: 100 MICROGRAM, EVERY 24 HOURS
     Route: 048
  3. TECENTRIQ [Suspect]
     Active Substance: ATEZOLIZUMAB
     Dosage: 1 DOSAGE FORM, CYCLICAL
     Dates: start: 20200407, end: 20200407
  4. ALIMTA [Concomitant]
     Active Substance: PEMETREXED DISODIUM
     Dosage: 880 MILLIGRAM, Q3W
     Route: 042
     Dates: start: 20200225
  5. PARAPLATIN [Concomitant]
     Active Substance: CARBOPLATIN
     Dosage: 588 MILLIGRAM, Q3W
     Route: 042
     Dates: start: 20200225
  6. FOLVITE [Concomitant]
     Active Substance: FOLIC ACID
     Dosage: 1 MILLIGRAM, EVERY 24 HOURS
     Route: 048
  7. FLUIMUCIL [Concomitant]
     Active Substance: ACETYLCYSTEINE
     Dosage: 200 MILLIGRAM, EVERY 24 HOURS
     Route: 048
  8. WILD VI DE 3 [Concomitant]
     Active Substance: CHOLECALCIFEROL
     Dosage: 800 INTERNATIONAL UNIT, EVERY 24 HOURS
     Route: 048
  9. FORTECORTIN [Concomitant]
     Active Substance: DEXAMETHASONE
     Dosage: 12 MILLIGRAM
     Route: 048
     Dates: start: 20200225
  10. AKYNZEO (NETUPITANT (+) PALONOSETRON HYDROCHLORIDE) [Concomitant]
     Dosage: 300 MILLIGRAM
     Route: 048
     Dates: start: 20200225

REACTIONS (2)
  - Myalgia [Recovered/Resolved]
  - Myalgia [Recovered/Resolved]

NARRATIVE: CASE EVENT DATE: 20200317
